FAERS Safety Report 7283715-X (Version None)
Quarter: 2011Q1

REPORT INFORMATION
  Report Type: 
  Country: None (occurrence: None)
  Receive Date: 20110209
  Receipt Date: 20110204
  Transmission Date: 20110831
  Serious: Yes (Other)
  Sender: FDA-Public Use
  Company Number: IT-ROCHE-757985

PATIENT
  Sex: Female
  Weight: 54 kg

DRUGS (3)
  1. LEVOTHYROX [Concomitant]
     Dates: start: 20090101
  2. RIBAVIRIN [Suspect]
     Dosage: DOSE: 3-0-2
     Route: 048
     Dates: start: 20100311
  3. PEGINTERFERON ALFA-2A [Suspect]
     Dosage: PERMANENTLY DISCONTINUED
     Route: 058
     Dates: start: 20100411, end: 20110202

REACTIONS (1)
  - ACOUSTIC NEURITIS [None]
